FAERS Safety Report 17709146 (Version 1)
Quarter: 2020Q2

REPORT INFORMATION
  Report Type: Spontaneous
  Country: US (occurrence: US)
  Receive Date: 20200426
  Receipt Date: 20200426
  Transmission Date: 20200714
  Serious: Yes (Hospitalization)
  Sender: FDA-Public Use
  Company Number: US-TECHDOW-2020TECHDOW000236

PATIENT
  Age: 69 Year
  Sex: Female

DRUGS (9)
  1. HEPARIN SODIUM INJECTION, USP (PRESERVATIVE?                    FREE) [Suspect]
     Active Substance: HEPARIN SODIUM
     Indication: CORONARY ARTERY BYPASS
  2. OXYCODONE [Concomitant]
     Active Substance: OXYCODONE
  3. ALLOPURINOL. [Concomitant]
     Active Substance: ALLOPURINOL
  4. MAGNESIUM [Concomitant]
     Active Substance: MAGNESIUM
  5. POLYETHYLENE GLYCOL [Concomitant]
     Active Substance: POLYETHYLENE GLYCOLS
  6. INSULIN [Concomitant]
     Active Substance: INSULIN NOS
  7. ATORVASTATIN [Concomitant]
     Active Substance: ATORVASTATIN
  8. HEPARIN SODIUM INJECTION, USP (PRESERVATIVE? FREE) [Suspect]
     Active Substance: HEPARIN SODIUM
     Indication: CORONARY ARTERY BYPASS
     Dosage: 5000UNIT,EVERY 8 HOURS
  9. METOPROLOL TARTRATE. [Concomitant]
     Active Substance: METOPROLOL TARTRATE

REACTIONS (4)
  - Hepatic steatosis [None]
  - Deep vein thrombosis [Recovered/Resolved]
  - Hepatitis [None]
  - Heparin-induced thrombocytopenia [Recovered/Resolved]
